FAERS Safety Report 13001663 (Version 1)
Quarter: 2016Q4

REPORT INFORMATION
  Report Type: Spontaneous
  Country: US (occurrence: US)
  Receive Date: 20161206
  Receipt Date: 20161206
  Transmission Date: 20170207
  Serious: No
  Sender: FDA-Public Use
  Company Number: US-MYLANLABS-2016M1041879

PATIENT
  Age: 58 Year
  Sex: Female
  Weight: 77.98 kg

DRUGS (3)
  1. CELEBREX [Concomitant]
     Active Substance: CELECOXIB
     Dosage: UNK
  2. NEURONTIN [Concomitant]
     Active Substance: GABAPENTIN
     Dosage: UNK UNK, HS
  3. LIDOCAINE PATCH [Suspect]
     Active Substance: LIDOCAINE
     Indication: PAIN
     Dosage: 1 DF, QD, 12 HRS ON, 12 HRS OFF
     Route: 003
     Dates: start: 20160927, end: 20160928

REACTIONS (3)
  - Product quality issue [Recovered/Resolved]
  - Product adhesion issue [Recovered/Resolved]
  - Drug ineffective for unapproved indication [Recovered/Resolved]

NARRATIVE: CASE EVENT DATE: 20160927
